FAERS Safety Report 17870325 (Version 2)
Quarter: 2020Q2

REPORT INFORMATION
  Report Type: Spontaneous
  Country: US (occurrence: US)
  Receive Date: 20200608
  Receipt Date: 20200608
  Transmission Date: 20200714
  Serious: Yes (Death)
  Sender: FDA-Public Use
  Company Number: US-PFIZER INC-2020221672

PATIENT
  Sex: Male

DRUGS (9)
  1. DEMEROL [Suspect]
     Active Substance: MEPERIDINE HYDROCHLORIDE
     Dosage: UNK, DAILY
     Dates: start: 200001, end: 20050331
  2. KLONOPIN [Suspect]
     Active Substance: CLONAZEPAM
     Dosage: UNK, DAILY
     Dates: start: 200001, end: 20050331
  3. XANAX [Suspect]
     Active Substance: ALPRAZOLAM
     Dosage: UNK, DAILY
     Dates: start: 200001, end: 20050331
  4. FENTANYL CITRATE. [Suspect]
     Active Substance: FENTANYL CITRATE
     Dosage: UNK, DAILY
     Dates: start: 200001, end: 20050331
  5. VALIUM [Suspect]
     Active Substance: DIAZEPAM
     Dosage: UNK, DAILY
     Dates: start: 200001, end: 20050331
  6. OXYCODONE [Suspect]
     Active Substance: OXYCODONE
     Dosage: UNK, DAILY
     Dates: start: 200001, end: 20050331
  7. CODEINE [Suspect]
     Active Substance: CODEINE
     Dosage: UNK, DAILY
     Dates: start: 200001, end: 20050331
  8. VICODIN [Suspect]
     Active Substance: ACETAMINOPHEN\HYDROCODONE BITARTRATE
     Dosage: UNK, DAILY
     Dates: start: 200001, end: 20050331
  9. ADDERALL [Suspect]
     Active Substance: AMPHETAMINE ASPARTATE\AMPHETAMINE SULFATE\DEXTROAMPHETAMINE SACCHARATE\DEXTROAMPHETAMINE SULFATE
     Dosage: UNK, DAILY
     Dates: start: 200001, end: 20050331

REACTIONS (1)
  - Drug abuse [Fatal]
